FAERS Safety Report 13063621 (Version 2)
Quarter: 2017Q1

REPORT INFORMATION
  Report Type: Spontaneous
  Country: US (occurrence: US)
  Receive Date: 20161227
  Receipt Date: 20170110
  Transmission Date: 20170428
  Serious: Yes (Life-Threatening, Hospitalization, Other)
  Sender: FDA-Public Use
  Company Number: US-AUROBINDO-AUR-APL-2016-15626

PATIENT
  Age: 46 Year
  Sex: Male

DRUGS (1)
  1. LOPERAMIDE [Suspect]
     Active Substance: LOPERAMIDE
     Indication: DIARRHOEA
     Dosage: UNK
     Route: 065

REACTIONS (11)
  - Syncope [Recovered/Resolved]
  - Tonic clonic movements [Unknown]
  - Dizziness [Recovered/Resolved]
  - Torsade de pointes [Recovered/Resolved]
  - Confusional state [Recovered/Resolved]
  - Overdose [Unknown]
  - Ventricular tachycardia [Recovered/Resolved]
  - Arrhythmia [Recovered/Resolved]
  - Urinary incontinence [Unknown]
  - Unresponsive to stimuli [Recovered/Resolved]
  - Tongue biting [Recovered/Resolved]
